FAERS Safety Report 10341954 (Version 7)
Quarter: 2015Q2

REPORT INFORMATION
  Report Type: Report from Study
  Country: US (occurrence: US)
  Receive Date: 20140725
  Receipt Date: 20150420
  Transmission Date: 20150821
  Serious: Yes (Hospitalization, Other)
  Sender: FDA-Public Use
  Company Number: US-SA-2014SA088453

PATIENT
  Age: 53 Year
  Sex: Female

DRUGS (6)
  1. AUBAGIO [Suspect]
     Active Substance: TERIFLUNOMIDE
     Indication: MULTIPLE SCLEROSIS
     Dosage: STRENGTH- 7 MG
     Route: 048
     Dates: end: 20150101
  2. AUBAGIO [Suspect]
     Active Substance: TERIFLUNOMIDE
     Indication: MULTIPLE SCLEROSIS
     Dosage: STRENGTH-14 MG
     Route: 048
  3. AUBAGIO [Suspect]
     Active Substance: TERIFLUNOMIDE
     Indication: SECONDARY PROGRESSIVE MULTIPLE SCLEROSIS
     Dosage: STRENGTH-14 MG
     Route: 048
  4. AUBAGIO [Suspect]
     Active Substance: TERIFLUNOMIDE
     Indication: MULTIPLE SCLEROSIS
     Dosage: STRENGTH-7 MG
     Route: 048
     Dates: start: 20140523
  5. AUBAGIO [Suspect]
     Active Substance: TERIFLUNOMIDE
     Indication: SECONDARY PROGRESSIVE MULTIPLE SCLEROSIS
     Dosage: STRENGTH-7 MG
     Route: 048
     Dates: start: 20140523
  6. AUBAGIO [Suspect]
     Active Substance: TERIFLUNOMIDE
     Indication: SECONDARY PROGRESSIVE MULTIPLE SCLEROSIS
     Dosage: STRENGTH- 7 MG
     Route: 048
     Dates: end: 20150101

REACTIONS (17)
  - Tremor [Unknown]
  - Bleeding time prolonged [Unknown]
  - Malaise [Recovering/Resolving]
  - Heart rate increased [Unknown]
  - Diarrhoea [Recovering/Resolving]
  - Pain [Unknown]
  - Sneezing [Unknown]
  - Blood pressure increased [Recovering/Resolving]
  - Balance disorder [Unknown]
  - Dry skin [Recovering/Resolving]
  - Peroneal nerve palsy [Unknown]
  - Sinus congestion [Unknown]
  - Peripheral swelling [Unknown]
  - Foot operation [Unknown]
  - Injury [Unknown]
  - Feeling abnormal [Unknown]
  - Exostosis [Unknown]

NARRATIVE: CASE EVENT DATE: 2014
